FAERS Safety Report 15708426 (Version 1)
Quarter: 2018Q4

REPORT INFORMATION
  Report Type: Spontaneous
  Country: US (occurrence: US)
  Receive Date: 20181128
  Receipt Date: 20181128
  Transmission Date: 20190205
  Serious: No
  Sender: FDA-Public Use
  Company Number: None

PATIENT
  Age: 53 Year
  Sex: Female

DRUGS (2)
  1. RASUVO [Suspect]
     Active Substance: METHOTREXATE SODIUM
     Indication: MYOCARDITIS
     Route: 058
     Dates: start: 20180619
  2. HUMIRA [Suspect]
     Active Substance: ADALIMUMAB
     Route: 058
     Dates: start: 20180418

REACTIONS (2)
  - Depersonalisation/derealisation disorder [None]
  - Depression [None]

NARRATIVE: CASE EVENT DATE: 20181115
